FAERS Safety Report 4980838-2 (Version None)
Quarter: 2006Q2

REPORT INFORMATION
  Report Type: 
  Country: None (occurrence: None)
  Receive Date: 20060424
  Receipt Date: 20060412
  Transmission Date: 20061013
  Serious: Yes (Death, Hospitalization)
  Sender: FDA-Public Use
  Company Number: US-MERCK-0604USA02092

PATIENT
  Age: 72 Year
  Sex: Female
  Weight: 73 kg

DRUGS (6)
  1. VIOXX [Suspect]
     Indication: ARTHRITIS
     Route: 048
     Dates: start: 19990101, end: 20011101
  2. COREG [Concomitant]
     Route: 065
  3. GLUCOTROL [Concomitant]
     Route: 065
  4. DIGITEK [Concomitant]
     Route: 065
  5. DIOVAN [Concomitant]
     Route: 065
  6. SPIRONOLACTONE [Concomitant]
     Route: 065

REACTIONS (5)
  - CARDIAC FAILURE CONGESTIVE [None]
  - CORONARY ARTERY DISEASE [None]
  - MYOCARDIAL INFARCTION [None]
  - MYOCARDIAL ISCHAEMIA [None]
  - SUDDEN CARDIAC DEATH [None]
